FAERS Safety Report 24295791 (Version 1)
Quarter: 2024Q3

REPORT INFORMATION
  Report Type: Spontaneous
  Country: IN (occurrence: None)
  Receive Date: 20240908
  Receipt Date: 20240908
  Transmission Date: 20241017
  Serious: Yes (Hospitalization, Other)
  Sender: UNICHEM
  Company Number: IN-Unichem Pharmaceuticals (USA) Inc-UCM202409-001090

PATIENT
  Age: 59 Year
  Sex: Female

DRUGS (1)
  1. AMIODARONE HYDROCHLORIDE [Suspect]
     Active Substance: AMIODARONE HYDROCHLORIDE
     Indication: Atrial fibrillation
     Dosage: UNKNOWN
     Route: 065

REACTIONS (9)
  - Ascites [Recovered/Resolved]
  - Fibrosis [Unknown]
  - Hepatic failure [Unknown]
  - Cholestatic liver injury [Recovered/Resolved]
  - Condition aggravated [Unknown]
  - Dyspepsia [Unknown]
  - Hepatic steatosis [Unknown]
  - Weight decreased [Unknown]
  - Product use in unapproved indication [Unknown]
